FAERS Safety Report 10363723 (Version 1)
Quarter: 2014Q3

REPORT INFORMATION
  Report Type: Spontaneous
  Country: US (occurrence: US)
  Receive Date: 20140805
  Receipt Date: 20140805
  Transmission Date: 20150326
  Serious: Yes (Other)
  Sender: FDA-Public Use
  Company Number: US-BAXTER-2014BAX045677

PATIENT
  Age: 8 Year
  Sex: Male

DRUGS (6)
  1. ALBUTEROL. [Suspect]
     Active Substance: ALBUTEROL
     Indication: ASTHMA
     Route: 065
  2. FORANE [Suspect]
     Active Substance: ISOFLURANE
     Indication: ASTHMA
     Route: 055
  3. FORANE [Suspect]
     Active Substance: ISOFLURANE
     Indication: OFF LABEL USE
  4. MAGNESIUM SULFATE [Suspect]
     Active Substance: MAGNESIUM SULFATE
     Indication: ASTHMA
     Route: 065
  5. TERBUTALINE [Suspect]
     Active Substance: TERBUTALINE
     Indication: ASTHMA
     Route: 065
  6. EPINEPHRINE. [Suspect]
     Active Substance: EPINEPHRINE
     Indication: ASTHMA
     Route: 058

REACTIONS (1)
  - Pupil fixed [Recovered/Resolved]
